FAERS Safety Report 20575022 (Version 3)
Quarter: 2022Q3

REPORT INFORMATION
  Report Type: Report from Study
  Country: GB (occurrence: None)
  Receive Date: 20220310
  Receipt Date: 20220705
  Transmission Date: 20221027
  Serious: Yes (Hospitalization, Other)
  Sender: FDA-Public Use
  Company Number: GB-Merck Healthcare KGaA-9304307

PATIENT
  Sex: Female

DRUGS (4)
  1. REBIF [Suspect]
     Active Substance: INTERFERON BETA-1A
     Indication: Multiple sclerosis
     Dosage: CARTRIDGES
     Route: 058
     Dates: start: 20070423
  2. REBIF [Suspect]
     Active Substance: INTERFERON BETA-1A
     Dosage: CARTRIDGES
     Route: 058
     Dates: start: 20211130
  3. REBIF [Suspect]
     Active Substance: INTERFERON BETA-1A
     Dates: start: 20220627
  4. BEVACIZUMAB [Concomitant]
     Active Substance: BEVACIZUMAB
     Indication: Product used for unknown indication

REACTIONS (3)
  - Nephrolithiasis [Unknown]
  - Chemotherapy [Unknown]
  - Secondary immunodeficiency [Unknown]
